FAERS Safety Report 5828907-9 (Version None)
Quarter: 2008Q3

REPORT INFORMATION
  Report Type: 
  Country: None (occurrence: None)
  Receive Date: 20080730
  Receipt Date: 20080724
  Transmission Date: 20090109
  Serious: Yes (Hospitalization)
  Sender: FDA-Public Use
  Company Number: APP200800267

PATIENT
  Age: 6 Year
  Sex: Male

DRUGS (11)
  1. HEPARIN SODIUM INJECTION [Suspect]
     Indication: PERITONEAL DIALYSIS
     Dosage: 3000 USP UNITS, ONCE, INTRAPERITONEAL
     Route: 033
     Dates: start: 20080327, end: 20080327
  2. CYSTAGON (MERCAPTAMINE) [Concomitant]
  3. LEVOTHYROXINE SODIUM [Concomitant]
  4. CALCITRIOL [Concomitant]
  5. POLYCITRA K    (POLYCITRA K) [Concomitant]
  6. LEVOCARNITIN       (LEVOCARNITINE HYDROCHLORIDE) [Concomitant]
  7. MEGESTROL ACETATE [Concomitant]
  8. POLYVISOL       (MULTIVIT /02170301/) [Concomitant]
  9. FERROUS        (IRON) [Concomitant]
  10. NUTROPIN AQ [Concomitant]
  11. EPO       (EPOETIN ALFA) [Concomitant]

REACTIONS (8)
  - DIZZINESS [None]
  - DYSPNOEA [None]
  - FATIGUE [None]
  - HYPOTENSION [None]
  - MYALGIA [None]
  - PERITONITIS [None]
  - PHARMACEUTICAL PRODUCT COMPLAINT [None]
  - STREPTOCOCCAL INFECTION [None]
